FAERS Safety Report 10045496 (Version 1)
Quarter: 2014Q1

REPORT INFORMATION
  Report Type: Spontaneous
  Country: US (occurrence: US)
  Receive Date: 20140328
  Receipt Date: 20140328
  Transmission Date: 20141002
  Serious: Yes (Hospitalization, Other)
  Sender: FDA-Public Use
  Company Number: US-ELI_LILLY_AND_COMPANY-US201403007644

PATIENT
  Sex: Male

DRUGS (5)
  1. HUMALOG LISPRO [Suspect]
     Indication: TYPE 2 DIABETES MELLITUS
     Dosage: 40 U, PRN
     Route: 065
  2. HUMALOG LISPRO [Suspect]
     Indication: TYPE 2 DIABETES MELLITUS
     Dosage: 40 U, PRN
     Route: 065
  3. BABY ASPIRIN [Concomitant]
  4. STATIN                             /00084401/ [Concomitant]
  5. LISINOPRIL [Concomitant]

REACTIONS (6)
  - Cardiac disorder [Unknown]
  - Blood glucose fluctuation [Unknown]
  - Feeling abnormal [Unknown]
  - Asthenia [Unknown]
  - Dizziness [Unknown]
  - Incorrect dose administered [Unknown]
